FAERS Safety Report 9393800 (Version 2)
Quarter: 2013Q3

REPORT INFORMATION
  Report Type: Spontaneous
  Country: CZ (occurrence: CZ)
  Receive Date: 20130710
  Receipt Date: 20130823
  Transmission Date: 20140515
  Serious: Yes (Other)
  Sender: FDA-Public Use
  Company Number: CZ-TEVA-416461ISR

PATIENT
  Age: 63 Year
  Sex: Female

DRUGS (2)
  1. OXALIPLATIN-TEVA 5 MG/ML, KONCENTRAT PRO PIPRAVU INFUZ ROZTOKU [Suspect]
     Route: 041
  2. BEVACIZUMAB [Concomitant]

REACTIONS (2)
  - Dyspnoea [Unknown]
  - Stridor [Unknown]
